FAERS Safety Report 7340543-4 (Version None)
Quarter: 2011Q1

REPORT INFORMATION
  Report Type: 
  Country: None (occurrence: None)
  Receive Date: 20110309
  Receipt Date: 20110224
  Transmission Date: 20110831
  Serious: Yes (Hospitalization)
  Sender: FDA-Public Use
  Company Number: PHHY2011JP17538

PATIENT
  Sex: Male
  Weight: 50 kg

DRUGS (12)
  1. WARFARIN SODIUM [Concomitant]
     Dosage: 5 MG, UNK
     Route: 048
     Dates: start: 20101023
  2. PLETAL [Concomitant]
     Dosage: 50 MG, UNK
     Route: 048
     Dates: start: 20101023, end: 20101025
  3. TAKEPRON [Concomitant]
     Dosage: 15 MG, UNK
     Route: 048
     Dates: start: 20101027
  4. GASMOTIN [Concomitant]
     Dosage: 15 MG, UNK
     Route: 048
     Dates: start: 20101102
  5. VALSARTAN [Suspect]
     Indication: HYPERTENSION
     Dosage: 80 MG, QD
     Route: 048
     Dates: start: 20090113
  6. WARFARIN SODIUM [Concomitant]
     Dosage: 4 MG, UNK
     Route: 048
  7. WARFARIN SODIUM [Concomitant]
     Dosage: 4.5 MG, UNK
     Route: 048
  8. RADICUT [Concomitant]
     Dosage: 60 MG, UNK
     Dates: start: 20101019, end: 20101101
  9. NORVASC [Concomitant]
     Indication: HYPERTENSION
     Dosage: 2.5 MG, UNK
     Route: 048
     Dates: start: 20101022
  10. AMLODIPINE [Concomitant]
     Dosage: 2.5 MG, UNK
     Route: 048
     Dates: end: 20101021
  11. WARFARIN SODIUM [Concomitant]
     Dosage: 3 MG, UNK
     Route: 048
  12. AMLODIPINE [Concomitant]
     Indication: HYPERTENSION
     Dosage: 5 MG, UNK
     Route: 048
     Dates: start: 20090127

REACTIONS (4)
  - MONOPLEGIA [None]
  - GAIT DISTURBANCE [None]
  - CEREBRAL INFARCTION [None]
  - ABASIA [None]
